FAERS Safety Report 8366291-X (Version None)
Quarter: 2012Q2

REPORT INFORMATION
  Report Type: 
  Country: None (occurrence: None)
  Receive Date: 20120517
  Receipt Date: 20120514
  Transmission Date: 20120825
  Serious: Yes (Other)
  Sender: FDA-Public Use
  Company Number: PHEH2012US006230

PATIENT
  Sex: Male
  Weight: 13.605 kg

DRUGS (5)
  1. TRILEPTAL [Suspect]
     Indication: CONVULSION
     Dosage: 5.5 ML, BID
     Route: 048
     Dates: start: 20111010
  2. CEFDINER [Concomitant]
     Dosage: 4 ML, DAILY
     Route: 048
     Dates: start: 20110916, end: 20110926
  3. MUPIROCIN [Concomitant]
     Dosage: UNK UKN, BID
     Route: 061
     Dates: start: 20111011
  4. FERROUS SULFATE TAB [Concomitant]
     Dosage: 1 DF, QD
     Route: 048
     Dates: start: 20110916
  5. AYR SALINE NASAL DROPS [Concomitant]
     Dosage: 2-3 DROPS EVERY 4HRS PRN
     Dates: start: 20111011

REACTIONS (2)
  - CRYING [None]
  - ORAL PAIN [None]
